FAERS Safety Report 8985495 (Version 1)
Quarter: 2012Q4

REPORT INFORMATION
  Report Type: 
  Country: FR (occurrence: FR)
  Receive Date: 20121226
  Receipt Date: 20121226
  Transmission Date: 20130627
  Serious: Yes (Life-Threatening, Hospitalization)
  Sender: FDA-Public Use
  Company Number: FR-ASTRAZENECA-2012SE95316

PATIENT
  Age: 70 Year
  Sex: Female

DRUGS (9)
  1. FASLODEX [Suspect]
     Indication: BREAST CANCER
     Route: 030
     Dates: start: 20101001, end: 201210
  2. FARMORUBICIN [Suspect]
     Indication: BREAST CANCER
     Dosage: 8 COURSES
     Route: 042
     Dates: start: 200304, end: 200308
  3. TAXOTERE [Suspect]
     Indication: BREAST CANCER
     Dosage: 8 COURSES
     Route: 042
     Dates: start: 200304, end: 200308
  4. XELODA [Suspect]
     Indication: BREAST CANCER
     Dosage: 1500 MG TWICE PER DAY - 14 DAYS PER COURSE - 17 COURSES
     Route: 048
     Dates: start: 20110624, end: 20120910
  5. NAVELBINE [Suspect]
     Indication: BREAST CANCER
     Dosage: 40 MG PER DAY FROM DAY 1 TO DAY 8 OF THE COURSE - 20 COURSES
     Route: 048
     Dates: start: 20110415, end: 20120910
  6. TAMOXIFEN [Concomitant]
     Dates: start: 200312, end: 200402
  7. ARIMIDEX [Concomitant]
     Dates: start: 200402, end: 200704
  8. AROMASIN [Concomitant]
     Dates: start: 200704, end: 201010
  9. PAMIDRONATE [Concomitant]

REACTIONS (3)
  - Cardiomyopathy [Recovering/Resolving]
  - Cardiac failure [Recovering/Resolving]
  - Ejection fraction decreased [Recovering/Resolving]
